FAERS Safety Report 4312122-4 (Version None)
Quarter: 2004Q1

REPORT INFORMATION
  Report Type: 
  Country: None (occurrence: None)
  Receive Date: 20040303
  Receipt Date: 20040220
  Transmission Date: 20041129
  Serious: No
  Sender: FDA-Public Use
  Company Number: 2004-113180-NL

PATIENT
  Age: 33 Year
  Sex: Male

DRUGS (8)
  1. MIRTAZAPINE [Suspect]
     Dosage: 30 MG/90 MG QD/30 MG
     Dates: end: 20040205
  2. MIRTAZAPINE [Suspect]
     Dosage: 30 MG/90 MG QD/30 MG
     Dates: start: 20040206, end: 20040210
  3. MIRTAZAPINE [Suspect]
     Dosage: 30 MG/90 MG QD/30 MG
     Dates: start: 20040211
  4. CO-CODAMOL [Concomitant]
  5. TEMAZEPAM [Concomitant]
  6. NONOXINOL [Concomitant]
  7. METFORMIN HYDROCHLORIDE [Concomitant]
  8. MIXTARD HUMAN 70/30 [Concomitant]

REACTIONS (1)
  - HYPOGLYCAEMIA [None]
